FAERS Safety Report 4471850-0 (Version None)
Quarter: 2004Q4

REPORT INFORMATION
  Report Type: 
  Country: None (occurrence: None)
  Receive Date: 20041007
  Receipt Date: 20040914
  Transmission Date: 20050328
  Serious: Yes (Other)
  Sender: FDA-Public Use
  Company Number: ZANA001353

PATIENT
  Age: 41 Year
  Sex: Female

DRUGS (3)
  1. ZANAFLEX [Suspect]
     Dosage: 16 MG DAILY ORAL
     Route: 048
  2. AVONEX (INTERFERON) [Concomitant]
  3. SANDOSTATIN [Concomitant]

REACTIONS (5)
  - BRADYCARDIA [None]
  - NAUSEA [None]
  - ORTHOSTATIC HYPOTENSION [None]
  - VOMITING [None]
  - WEIGHT DECREASED [None]
